FAERS Safety Report 6167287-9 (Version None)
Quarter: 2009Q2

REPORT INFORMATION
  Report Type: 
  Country: None (occurrence: None)
  Receive Date: 20090424
  Receipt Date: 20090422
  Transmission Date: 20091009
  Serious: Yes (Hospitalization, Disabling)
  Sender: FDA-Public Use
  Company Number: US-BRISTOL-MYERS SQUIBB COMPANY-14597041

PATIENT
  Age: 53 Year
  Sex: Female
  Weight: 66 kg

DRUGS (7)
  1. SERZONE [Suspect]
  2. NEURONTIN [Suspect]
  3. PAXIL [Suspect]
     Indication: DEPRESSION
     Route: 048
     Dates: start: 19980101, end: 20000101
  4. LITHIUM CARBONATE [Suspect]
  5. ATIVAN [Suspect]
     Route: 065
  6. DEPAKOTE [Suspect]
     Route: 065
  7. LEVOTHYROXINE SODIUM [Concomitant]

REACTIONS (6)
  - DRUG INEFFECTIVE [None]
  - HYPERSENSITIVITY [None]
  - HYPERSOMNIA [None]
  - IMPAIRED WORK ABILITY [None]
  - LOSS OF CONSCIOUSNESS [None]
  - WEIGHT INCREASED [None]
